FAERS Safety Report 11095318 (Version 1)
Quarter: 2015Q2

REPORT INFORMATION
  Report Type: Spontaneous
  Country: US (occurrence: US)
  Receive Date: 20150506
  Receipt Date: 20150506
  Transmission Date: 20150821
  Serious: No
  Sender: FDA-Public Use
  Company Number: US-SA-2015SA005253

PATIENT
  Age: 15 Year
  Sex: Male

DRUGS (4)
  1. SOLOSTAR [Suspect]
     Active Substance: DEVICE
     Indication: DIABETES MELLITUS
     Dosage: FREQUENCY: SLIDING SCALE
     Dates: start: 201412
  2. APIDRA SOLOSTAR [Suspect]
     Active Substance: INSULIN GLULISINE
     Indication: DIABETES MELLITUS
     Dosage: DOSE 2-5 SLIDING SCALE
     Route: 065
     Dates: start: 201412
  3. APIDRA SOLOSTAR [Suspect]
     Active Substance: INSULIN GLULISINE
     Indication: DIABETES MELLITUS
     Dosage: DOSE 2-5 SLIDING SCALE
     Route: 065
     Dates: start: 201412
  4. SOLOSTAR [Suspect]
     Active Substance: DEVICE
     Indication: DIABETES MELLITUS
     Dosage: FREQUENCY: SLIDING SCALE
     Dates: start: 201412

REACTIONS (1)
  - Injection site pain [Unknown]
